FAERS Safety Report 4688280-9 (Version None)
Quarter: 2005Q2

REPORT INFORMATION
  Report Type: 
  Country: None (occurrence: None)
  Receive Date: 20050609
  Receipt Date: 20050530
  Transmission Date: 20051028
  Serious: Yes (Hospitalization)
  Sender: FDA-Public Use
  Company Number: R301257-PRT05T-J

PATIENT
  Age: 72 Year
  Sex: Female

DRUGS (4)
  1. E3810 (RABEPRAZOLE) [Suspect]
     Indication: REFLUX OESOPHAGITIS
     Dosage: 10 MG, 1 IN 1 D, ORAL
     Route: 048
     Dates: start: 20040707
  2. LOCHOL (FLUVASTATIN SODIUM) [Concomitant]
  3. APLACE (TROXIPIDE) [Concomitant]
  4. PROTECADIN [Concomitant]

REACTIONS (3)
  - CHOLECYSTITIS [None]
  - CHOLELITHIASIS [None]
  - HAEMORRHOIDS [None]
